FAERS Safety Report 17846455 (Version 1)
Quarter: 2020Q2

REPORT INFORMATION
  Report Type: Report from Study
  Country: ES (occurrence: ES)
  Receive Date: 20200601
  Receipt Date: 20200601
  Transmission Date: 20200714
  Serious: Yes (Life-Threatening, Hospitalization)
  Sender: FDA-Public Use
  Company Number: ES-TEVA-2020-ES-1241778

PATIENT
  Age: 43 Year
  Sex: Male

DRUGS (6)
  1. LORAZEPAM (1864A) [Concomitant]
     Active Substance: LORAZEPAM
     Indication: DEPRESSION
     Dosage: 2 MG
     Route: 048
     Dates: start: 20190508, end: 20191103
  2. QUETIAPINA (1136A) [Interacting]
     Active Substance: QUETIAPINE
     Indication: SUICIDE ATTEMPT
     Route: 048
     Dates: start: 20191104, end: 20191104
  3. TOPIRAMATO (7245A) [Concomitant]
     Active Substance: TOPIRAMATE
     Indication: PAIN
     Dosage: 150 MG
     Route: 048
     Dates: start: 20190508, end: 20191103
  4. DESVENLAFAXINA SUCCINATO MONOHIDRATO (8296LY) [Concomitant]
     Active Substance: DESVENLAFAXINE SUCCINATE
     Indication: DEPRESSION
     Dosage: 250 MG
     Route: 048
     Dates: start: 20170120, end: 20191103
  5. ALPRAZOLAM (99A) [Suspect]
     Active Substance: ALPRAZOLAM
     Indication: SUICIDE ATTEMPT
     Route: 048
     Dates: start: 20191104, end: 20191104
  6. QUETIAPINA (1136A) [Concomitant]
     Active Substance: QUETIAPINE
     Indication: DEPRESSION
     Dosage: 50 MG
     Route: 048
     Dates: start: 20190802, end: 20191103

REACTIONS (3)
  - Intentional overdose [Recovered/Resolved]
  - Drug interaction [Unknown]
  - Coma [Recovered/Resolved]

NARRATIVE: CASE EVENT DATE: 20191104
